FAERS Safety Report 24140966 (Version 1)
Quarter: 2024Q3

REPORT INFORMATION
  Report Type: Spontaneous
  Country: IT (occurrence: IT)
  Receive Date: 20240726
  Receipt Date: 20240726
  Transmission Date: 20241017
  Serious: Yes (Hospitalization, Other)
  Sender: EMD SERONO INC
  Company Number: IT-Merck Healthcare KGaA-2024039727

PATIENT

DRUGS (1)
  1. MAVENCLAD [Suspect]
     Active Substance: CLADRIBINE
     Indication: Multiple sclerosis
     Dosage: PRODUCT TAKEN BY MOTHER
     Route: 064

REACTIONS (2)
  - Premature baby [Recovered/Resolved]
  - Immature respiratory system [Unknown]
